FAERS Safety Report 23228030 (Version 1)
Quarter: 2023Q4

REPORT INFORMATION
  Report Type: Spontaneous
  Country: US (occurrence: US)
  Receive Date: 20231125
  Receipt Date: 20231125
  Transmission Date: 20240109
  Serious: No
  Sender: FDA-Public Use
  Company Number: US-AMGEN-USASP2023209031

PATIENT
  Age: 48 Year
  Sex: Female
  Weight: 67.9 kg

DRUGS (1)
  1. NEULASTA [Suspect]
     Active Substance: PEGFILGRASTIM
     Indication: Breast cancer
     Dosage: 6 MILLIGRAM
     Route: 065

REACTIONS (4)
  - Intercepted product administration error [Unknown]
  - Fatigue [Unknown]
  - Drug intolerance [Unknown]
  - Bone pain [Unknown]

NARRATIVE: CASE EVENT DATE: 20231121
